FAERS Safety Report 11254814 (Version 1)
Quarter: 2015Q3

REPORT INFORMATION
  Report Type: Spontaneous
  Country: US (occurrence: None)
  Receive Date: 20150708
  Receipt Date: 20150708
  Transmission Date: 20151125
  Serious: Yes (Other)
  Sender: FDA-Public Use
  Company Number: None

PATIENT
  Age: 43 Year
  Sex: Male
  Weight: 74.84 kg

DRUGS (1)
  1. OTEZLA [Suspect]
     Active Substance: APREMILAST
     Indication: PSORIASIS
     Dosage: 2 PILLS
     Route: 048
     Dates: start: 20150630, end: 20150704

REACTIONS (5)
  - Cough [None]
  - Pyrexia [None]
  - Pulmonary congestion [None]
  - Influenza [None]
  - Oropharyngeal pain [None]

NARRATIVE: CASE EVENT DATE: 20150704
